FAERS Safety Report 5051207-4 (Version None)
Quarter: 2006Q3

REPORT INFORMATION
  Report Type: 
  Country: None (occurrence: None)
  Receive Date: 20060714
  Receipt Date: 20060704
  Transmission Date: 20061208
  Serious: Yes (Hospitalization, Other)
  Sender: FDA-Public Use
  Company Number: JP-JNJFOC-20060604720

PATIENT
  Sex: Female
  Weight: 46 kg

DRUGS (37)
  1. REMICADE [Suspect]
     Route: 042
  2. REMICADE [Suspect]
     Route: 042
  3. REMICADE [Suspect]
     Route: 042
  4. REMICADE [Suspect]
     Route: 042
  5. REMICADE [Suspect]
     Route: 042
  6. REMICADE [Suspect]
     Route: 042
  7. REMICADE [Suspect]
     Route: 042
  8. REMICADE [Suspect]
     Route: 042
  9. REMICADE [Suspect]
     Indication: RHEUMATOID ARTHRITIS
     Route: 042
  10. VOLTAREN [Suspect]
     Route: 054
  11. VOLTAREN [Suspect]
     Indication: RHEUMATOID ARTHRITIS
     Route: 054
  12. ACTONEL [Suspect]
     Indication: OSTEOPOROSIS
     Route: 048
  13. ZANTAC [Suspect]
     Indication: GASTRITIS
     Route: 048
  14. KETOPROFEN [Suspect]
     Indication: RHEUMATOID ARTHRITIS
     Dosage: DOSE 7CM X 10 CM
  15. FOLIAMIN [Suspect]
     Route: 048
  16. FOLIAMIN [Suspect]
     Indication: DRUG USE FOR UNKNOWN INDICATION
     Route: 048
  17. RHEUMATREX [Concomitant]
     Route: 048
  18. RHEUMATREX [Concomitant]
     Dosage: TEMPORARILY, 4 MG/WEEK AND 8 MG/WEEK
     Route: 048
  19. RHEUMATREX [Concomitant]
     Route: 048
  20. RHEUMATREX [Concomitant]
     Route: 048
  21. RHEUMATREX [Concomitant]
     Indication: RHEUMATOID ARTHRITIS
     Route: 048
  22. KENACORT [Concomitant]
     Indication: RHEUMATOID ARTHRITIS
     Dosage: ROUTE: ^IR^
  23. METHOTREXATE [Concomitant]
     Dosage: START DATE: LATE APR-2005
     Route: 048
  24. METHOTREXATE [Concomitant]
     Indication: RHEUMATOID ARTHRITIS
     Route: 048
  25. MEDROL [Concomitant]
     Dosage: DOSE ^6-5 MG^
     Route: 048
  26. MEDROL [Concomitant]
     Route: 048
  27. MEDROL [Concomitant]
     Indication: RHEUMATOID ARTHRITIS
     Route: 048
  28. METALCAPTASE [Concomitant]
     Indication: RHEUMATOID ARTHRITIS
     Route: 048
  29. BONALON [Concomitant]
     Route: 048
  30. CYANOCOBALAMIN [Concomitant]
     Route: 048
  31. ALFAROL [Concomitant]
     Dosage: DOSE: 0.5 RG
     Route: 048
  32. MUCOSTA [Concomitant]
     Route: 048
  33. PYDOXAL [Concomitant]
     Route: 048
  34. CINAL [Concomitant]
     Route: 048
  35. WARFARIN SODIUM [Concomitant]
     Route: 048
  36. UNKNOWN RHEUMATOID ARTHRITIS MEDICATION [Concomitant]
     Indication: RHEUMATOID ARTHRITIS
     Route: 065
  37. ADRENAL HORMONE PREPARATION [Concomitant]
     Indication: RHEUMATOID ARTHRITIS

REACTIONS (11)
  - ALANINE AMINOTRANSFERASE INCREASED [None]
  - ASPARTATE AMINOTRANSFERASE INCREASED [None]
  - BLOOD LACTATE DEHYDROGENASE INCREASED [None]
  - HAEMATOCRIT DECREASED [None]
  - HAEMOGLOBIN DECREASED [None]
  - HEPATIC FUNCTION ABNORMAL [None]
  - NECROTISING FASCIITIS STREPTOCOCCAL [None]
  - PROTHROMBIN TIME PROLONGED [None]
  - PRURITUS [None]
  - RASH [None]
  - SKIN ULCER [None]
